FAERS Safety Report 11084854 (Version 3)
Quarter: 2015Q3

REPORT INFORMATION
  Report Type: Spontaneous
  Country: US (occurrence: US)
  Receive Date: 20150503
  Receipt Date: 20150717
  Transmission Date: 20151125
  Serious: No
  Sender: FDA-Public Use
  Company Number: US-JNJFOC-20150308179

PATIENT
  Sex: Female

DRUGS (5)
  1. XARELTO [Suspect]
     Active Substance: RIVAROXABAN
     Indication: PRODUCT USED FOR UNKNOWN INDICATION
     Dosage: 1-5MG DAILY
     Route: 048
     Dates: start: 20140709
  2. FLECAINIDE [Concomitant]
     Active Substance: FLECAINIDE
  3. AMLODIPINE [Concomitant]
     Active Substance: AMLODIPINE BESYLATE
  4. LEVOTHYROXINE. [Concomitant]
     Active Substance: LEVOTHYROXINE
  5. BUSPIRONE [Concomitant]
     Active Substance: BUSPIRONE HYDROCHLORIDE

REACTIONS (1)
  - Sinusitis [Recovered/Resolved]
